FAERS Safety Report 20429184 (Version 1)
Quarter: 2022Q1

REPORT INFORMATION
  Report Type: Report from Study
  Country: US (occurrence: US)
  Receive Date: 20220204
  Receipt Date: 20220204
  Transmission Date: 20220423
  Serious: Yes (Hospitalization, Other)
  Sender: FDA-Public Use
  Company Number: US-ORG100014127-2022000097

PATIENT
  Age: 62 Year
  Sex: Male

DRUGS (3)
  1. LYSODREN [Suspect]
     Active Substance: MITOTANE
     Dosage: 02 TABLETS TWICE DAILY
     Route: 048
     Dates: start: 20201202
  2. LYSODREN [Suspect]
     Active Substance: MITOTANE
     Dosage: 06 TABLETS DAILY
     Route: 048
     Dates: start: 202201
  3. Furosemide tab 20 mg [Concomitant]
     Dosage: UNK
     Route: 065

REACTIONS (1)
  - Hypokalaemia [Recovered/Resolved]

NARRATIVE: CASE EVENT DATE: 20220112
